FAERS Safety Report 6295014-3 (Version None)
Quarter: 2009Q3

REPORT INFORMATION
  Report Type: 
  Country: None (occurrence: None)
  Receive Date: 20090731
  Receipt Date: 20090731
  Transmission Date: 20100115
  Serious: Yes (Other)
  Sender: FDA-Public Use
  Company Number: None

PATIENT
  Age: 60 Year
  Sex: Female
  Weight: 79.3795 kg

DRUGS (1)
  1. LEVAQUIN [Suspect]
     Indication: SINUSITIS
     Dosage: 1 1 X A DAY PO
     Route: 048
     Dates: start: 20090720, end: 20090726

REACTIONS (3)
  - ARTHRALGIA [None]
  - JOINT SWELLING [None]
  - SINUSITIS [None]
